FAERS Safety Report 6894913-9 (Version None)
Quarter: 2010Q3

REPORT INFORMATION
  Report Type: 
  Country: None (occurrence: None)
  Receive Date: 20100728
  Receipt Date: 20100713
  Transmission Date: 20110219
  Serious: Yes (Other)
  Sender: FDA-Public Use
  Company Number: 1000015056

PATIENT
  Age: 26 Year
  Sex: Female

DRUGS (4)
  1. ESCITALOPRAM OXALATE [Suspect]
     Indication: ANXIETY
     Dosage: 1-2 MG (1 IN 1 D), ORAL
     Route: 048
     Dates: start: 20100426
  2. ESCITALOPRAM OXALATE [Suspect]
     Indication: ANXIETY
     Dosage: 5 MG (5 MG, 1 IN 1 D), ORAL
     Route: 048
     Dates: end: 20100601
  3. ESCITALOPRAM OXALATE [Suspect]
     Indication: ANXIETY
     Dosage: 8 MG (8 MG, 1 IN 1 D), ORAL
     Route: 048
     Dates: start: 20100601, end: 20100701
  4. THIOMUCASE [Suspect]
     Indication: PEAU D'ORANGE
     Dosage: TOPICAL
     Route: 061
     Dates: end: 20100701

REACTIONS (2)
  - ACTIVATED PARTIAL THROMBOPLASTIN TIME PROLONGED [None]
  - HAEMATOMA [None]
